FAERS Safety Report 9815877 (Version 4)
Quarter: 2014Q1

REPORT INFORMATION
  Report Type: Spontaneous
  Country: US (occurrence: US)
  Receive Date: 20140114
  Receipt Date: 20140307
  Transmission Date: 20141002
  Serious: Yes (Hospitalization, Other)
  Sender: FDA-Public Use
  Company Number: US-GILEAD-2014-0091244

PATIENT
  Sex: Female

DRUGS (4)
  1. LETAIRIS [Suspect]
     Indication: PRODUCT USED FOR UNKNOWN INDICATION
     Dosage: 10 MG, QD
     Route: 065
     Dates: start: 20100309
  2. LETAIRIS [Suspect]
     Dates: start: 20100310
  3. TYVASO [Concomitant]
     Dosage: 5 DF, UNK
  4. REVATIO [Concomitant]

REACTIONS (10)
  - Atrial fibrillation [Unknown]
  - Loss of consciousness [Unknown]
  - Cardiac pacemaker insertion [Unknown]
  - Cough [Unknown]
  - Dysphonia [Unknown]
  - Throat irritation [Unknown]
  - Diarrhoea [Unknown]
  - Headache [Unknown]
  - Vomiting [Unknown]
  - Asthenia [Unknown]
